FAERS Safety Report 15763772 (Version 1)
Quarter: 2018Q4

REPORT INFORMATION
  Report Type: Spontaneous
  Country: US (occurrence: US)
  Receive Date: 20181227
  Receipt Date: 20181227
  Transmission Date: 20190205
  Serious: No
  Sender: FDA-Public Use
  Company Number: US-TEVA-2018-US-992004

PATIENT
  Sex: Female

DRUGS (1)
  1. METHYLPREDNISOLONE ACETATE SDV [Suspect]
     Active Substance: METHYLPREDNISOLONE ACETATE
     Indication: PAIN
     Route: 065

REACTIONS (2)
  - Pain [Recovered/Resolved]
  - Drug ineffective [Unknown]
